FAERS Safety Report 4773437-9 (Version None)
Quarter: 2005Q3

REPORT INFORMATION
  Report Type: 
  Country: None (occurrence: None)
  Receive Date: 20050914
  Receipt Date: 20041025
  Transmission Date: 20060218
  Serious: Yes (Hospitalization)
  Sender: FDA-Public Use
  Company Number: 163-20785-04100707

PATIENT
  Age: 61 Year
  Sex: Female
  Weight: 61.2356 kg

DRUGS (14)
  1. THALOMID [Suspect]
     Indication: BREAST CANCER METASTATIC
     Dosage: 100 MG, QHS, ORAL
     Route: 048
     Dates: start: 20040908, end: 20040913
  2. XELODA [Suspect]
     Indication: BREAST CANCER METASTATIC
     Dosage: 1500 MG, BID, ORAL
     Route: 048
     Dates: start: 20040907, end: 20040914
  3. AVINZA (MORPHINE SULFATE) (UNKNOWN) [Concomitant]
  4. ATENOLOL [Concomitant]
  5. TEMAZEPAM [Concomitant]
  6. SUCRALFATE [Concomitant]
  7. LISINOPRIL [Concomitant]
  8. GLYBURIDE [Concomitant]
  9. IMODIUM [Concomitant]
  10. MICRO-K (POTASSIUM CHLORIDE) [Concomitant]
  11. ARANESP [Concomitant]
  12. HYDROCODONE / APAP (VICODIN) [Concomitant]
  13. GENTAMYCIN OPHTHALMIC OINTMENT (GENTAMICIN SULFATE) [Concomitant]
  14. CIPRO [Concomitant]

REACTIONS (5)
  - ANOREXIA [None]
  - DEHYDRATION [None]
  - DIARRHOEA [None]
  - FAECAL INCONTINENCE [None]
  - HYPOTENSION [None]
